FAERS Safety Report 5642513-0 (Version None)
Quarter: 2008Q1

REPORT INFORMATION
  Report Type: 
  Country: None (occurrence: None)
  Receive Date: 20080226
  Receipt Date: 20080218
  Transmission Date: 20080703
  Serious: Yes (Hospitalization)
  Sender: FDA-Public Use
  Company Number: 18362

PATIENT
  Age: 3 Year
  Sex: Male
  Weight: 13.3 kg

DRUGS (22)
  1. METHOTREXATE [Suspect]
     Indication: ACUTE LYMPHOCYTIC LEUKAEMIA
  2. METHOTREXATE [Suspect]
     Indication: ACUTE LYMPHOCYTIC LEUKAEMIA
     Dosage: 24 MG IV
     Route: 042
     Dates: start: 20080109, end: 20080109
  3. METHOTREXATE [Suspect]
     Indication: ACUTE LYMPHOCYTIC LEUKAEMIA
     Dosage: 12 MG IT
     Route: 038
     Dates: start: 20080121, end: 20080121
  4. METHOTREXATE [Suspect]
     Indication: ACUTE LYMPHOCYTIC LEUKAEMIA
     Dosage: 12 MG IT
     Route: 038
     Dates: start: 20080204, end: 20080204
  5. METHOTREXATE [Suspect]
     Indication: ACUTE LYMPHOCYTIC LEUKAEMIA
     Dosage: 0.3 IV
     Route: 042
     Dates: start: 20080205, end: 20080205
  6. METHOTREXATE [Suspect]
     Indication: ACUTE LYMPHOCYTIC LEUKAEMIA
     Dosage: 2.6 G IV
     Route: 042
     Dates: start: 20080205, end: 20080205
  7. ACETAMINOPHEN [Concomitant]
  8. ACYCLOVIR [Concomitant]
  9. ALLOPURINOL [Concomitant]
  10. CYTARABINE [Concomitant]
  11. CEFTAZIDIME SODIUM [Concomitant]
  12. HYDROCORTISONE [Concomitant]
  13. DEXRAZOXANE [Concomitant]
  14. DOXORUBICIN HCL [Concomitant]
  15. DIMENHYDRINATE [Concomitant]
  16. DIPHENHYDRAMINE HCL [Concomitant]
  17. FLUTICASONE [Concomitant]
  18. FUROSEMIDE [Concomitant]
  19. MINERAL OIL [Concomitant]
  20. SODIUM DOCUSATE [Concomitant]
  21. LACTULOSE [Concomitant]
  22. ELSPAR [Concomitant]

REACTIONS (7)
  - APHASIA [None]
  - DEPRESSED LEVEL OF CONSCIOUSNESS [None]
  - EXCESSIVE EYE BLINKING [None]
  - NEUROTOXICITY [None]
  - STARING [None]
  - UNRESPONSIVE TO STIMULI [None]
  - URINARY INCONTINENCE [None]
